FAERS Safety Report 15838550 (Version 1)
Quarter: 2019Q1

REPORT INFORMATION
  Report Type: Spontaneous
  Country: DE (occurrence: DE)
  Receive Date: 20190117
  Receipt Date: 20190117
  Transmission Date: 20190417
  Serious: Yes (Hospitalization)
  Sender: FDA-Public Use
  Company Number: DE-ASTRAZENECA-2019SE07237

PATIENT
  Age: 51 Year
  Sex: Male
  Weight: 83 kg

DRUGS (5)
  1. MONTELUKAST [Concomitant]
     Active Substance: MONTELUKAST SODIUM
  2. SPIRIVA RESPIMAT [Concomitant]
     Active Substance: TIOTROPIUM BROMIDE
  3. PREDNISOLON [Concomitant]
     Active Substance: PREDNISOLONE
     Dosage: 40.0MG AS REQUIRED
  4. ROFLUMILAST. [Concomitant]
     Active Substance: ROFLUMILAST
  5. SYMBICORT [Suspect]
     Active Substance: BUDESONIDE\FORMOTEROL FUMARATE DIHYDRATE
     Dosage: 160/4.5 MICROGRAMS TWO TIMES A DAY
     Route: 055

REACTIONS (1)
  - Condition aggravated [Unknown]
